FAERS Safety Report 12420322 (Version 2)
Quarter: 2016Q3

REPORT INFORMATION
  Report Type: Spontaneous
  Country: JP (occurrence: JP)
  Receive Date: 20160531
  Receipt Date: 20160803
  Transmission Date: 20161109
  Serious: Yes (Hospitalization)
  Sender: FDA-Public Use
  Company Number: PHJP2016JP014013

PATIENT
  Age: 73 Year
  Sex: Male

DRUGS (4)
  1. DOPS [Suspect]
     Active Substance: DROXIDOPA
     Indication: PARKINSON^S DISEASE
     Dosage: UNK
     Route: 048
  2. TRERIEF [Suspect]
     Active Substance: ZONISAMIDE
     Indication: PARKINSON^S DISEASE
     Dosage: UNK
     Route: 048
  3. STALEVO [Suspect]
     Active Substance: CARBIDOPA\ENTACAPONE\LEVODOPA
     Indication: DOPAMINE DYSREGULATION SYNDROME
     Dosage: 400 MG, QD
     Route: 048
     Dates: start: 20150319
  4. MIRAPEX [Suspect]
     Active Substance: PRAMIPEXOLE DIHYDROCHLORIDE
     Indication: PARKINSON^S DISEASE
     Dosage: UNK
     Route: 048

REACTIONS (4)
  - Delusion [Unknown]
  - Aggression [Unknown]
  - Hallucination [Unknown]
  - Dopamine dysregulation syndrome [Unknown]

NARRATIVE: CASE EVENT DATE: 20160523
